FAERS Safety Report 5360454-3 (Version None)
Quarter: 2007Q2

REPORT INFORMATION
  Report Type: 
  Country: None (occurrence: None)
  Receive Date: 20070530
  Receipt Date: 20070129
  Transmission Date: 20071010
  Serious: No
  Sender: FDA-Public Use
  Company Number: 2007PV029209

PATIENT
  Age: 47 Year
  Sex: Female

DRUGS (3)
  1. BYETTA [Suspect]
     Indication: DIABETES MELLITUS NON-INSULIN-DEPENDENT
     Dosage: 10 MCG; 5 MCG : BID; SC
     Route: 058
     Dates: start: 20060301, end: 20060101
  2. BYETTA [Suspect]
     Indication: DIABETES MELLITUS NON-INSULIN-DEPENDENT
     Dosage: 10 MCG; 5 MCG : BID; SC
     Route: 058
     Dates: start: 20060101, end: 20070119
  3. GLIPIZIDE [Concomitant]

REACTIONS (6)
  - BLOOD GLUCOSE DECREASED [None]
  - BLOOD GLUCOSE INCREASED [None]
  - HEART RATE INCREASED [None]
  - INJECTION SITE NODULE [None]
  - NAUSEA [None]
  - VOMITING [None]
